FAERS Safety Report 7623244-4 (Version None)
Quarter: 2011Q3

REPORT INFORMATION
  Report Type: 
  Country: None (occurrence: None)
  Receive Date: 20110720
  Receipt Date: 20110707
  Transmission Date: 20111222
  Serious: Yes (Hospitalization)
  Sender: FDA-Public Use
  Company Number: SE-JNJFOC-20110702719

PATIENT
  Age: 16 Year
  Sex: Female

DRUGS (3)
  1. PENTASA [Concomitant]
  2. OMEPRAZOL ACTAVIS [Concomitant]
  3. REMICADE [Suspect]
     Indication: CROHN'S DISEASE
     Dosage: 200MG 4 TIMES
     Route: 042
     Dates: start: 20101217, end: 20110323

REACTIONS (9)
  - RASH ERYTHEMATOUS [None]
  - INFUSION RELATED REACTION [None]
  - SWELLING FACE [None]
  - DYSPNOEA [None]
  - THROAT TIGHTNESS [None]
  - BLOOD PRESSURE DECREASED [None]
  - PRURITUS [None]
  - HYPERSENSITIVITY [None]
  - NAUSEA [None]
